FAERS Safety Report 9275373 (Version 1)
Quarter: 2013Q2

REPORT INFORMATION
  Report Type: Report from Study
  Country: US (occurrence: US)
  Receive Date: 20130507
  Receipt Date: 20130507
  Transmission Date: 20140414
  Serious: Yes (Hospitalization)
  Sender: FDA-Public Use
  Company Number: US-ROCHE-1221765

PATIENT
  Age: 63 Year
  Sex: Male
  Weight: 76.73 kg

DRUGS (1)
  1. ZELBORAF [Suspect]
     Indication: METASTATIC MALIGNANT MELANOMA
     Route: 048
     Dates: start: 20130228, end: 20130406

REACTIONS (2)
  - Hepatic enzyme abnormal [Recovered/Resolved]
  - Lymphadenectomy [Recovered/Resolved]
